FAERS Safety Report 10390120 (Version 1)
Quarter: 2014Q3

REPORT INFORMATION
  Report Type: Spontaneous
  Country: BR (occurrence: BR)
  Receive Date: 20140818
  Receipt Date: 20140818
  Transmission Date: 20150326
  Serious: Yes (Other)
  Sender: FDA-Public Use
  Company Number: BR-PFIZER INC-2014225062

PATIENT
  Age: 70 Year
  Sex: Male
  Weight: 94 kg

DRUGS (3)
  1. XALATAN [Suspect]
     Active Substance: LATANOPROST
     Indication: GLAUCOMA
     Dosage: 3 UG (1 DROP IN BOTH EYES), 1X/DAY
     Route: 047
     Dates: start: 201405
  2. AZORGA [Concomitant]
     Active Substance: BRINZOLAMIDE\TIMOLOL MALEATE
     Indication: GLAUCOMA
     Dosage: 1 GTT IN BOTH EYES, 2X/DAY
     Dates: start: 201404
  3. ALPHAGAN P [Concomitant]
     Active Substance: BRIMONIDINE TARTRATE
     Indication: GLAUCOMA
     Dosage: 1 GTT IN BOTH EYES, 2X/DAY
     Route: 047
     Dates: start: 201404

REACTIONS (1)
  - Visual acuity reduced [Not Recovered/Not Resolved]
